FAERS Safety Report 20616294 (Version 1)
Quarter: 2022Q1

REPORT INFORMATION
  Report Type: Spontaneous
  Country: US (occurrence: None)
  Receive Date: 20220319
  Receipt Date: 20220319
  Transmission Date: 20220423
  Serious: Yes (Hospitalization)
  Sender: FDA-Public Use
  Company Number: None

PATIENT
  Sex: Male
  Weight: 70 kg

DRUGS (2)
  1. CARBOPLATIN [Suspect]
     Active Substance: CARBOPLATIN
     Dates: start: 20200211
  2. ETOPOSIDE [Suspect]
     Active Substance: ETOPOSIDE
     Indication: Drug therapy
     Dates: end: 20200213

REACTIONS (7)
  - Febrile neutropenia [None]
  - Klebsiella sepsis [None]
  - Streptococcal bacteraemia [None]
  - Clostridium difficile infection [None]
  - Acute kidney injury [None]
  - Haemodialysis [None]
  - Refusal of treatment by patient [None]

NARRATIVE: CASE EVENT DATE: 20220222
